FAERS Safety Report 5725286-2 (Version None)
Quarter: 2008Q2

REPORT INFORMATION
  Report Type: 
  Country: None (occurrence: None)
  Receive Date: 20080501
  Receipt Date: 20080423
  Transmission Date: 20081010
  Serious: Yes (Hospitalization)
  Sender: FDA-Public Use
  Company Number: GB-ASTRAZENECA-2008GB00370

PATIENT
  Age: 43 Year
  Sex: Female
  Weight: 77 kg

DRUGS (3)
  1. LOSEC I.V. [Suspect]
     Indication: DYSPEPSIA
     Dosage: 20 MG
     Route: 048
     Dates: start: 20080115, end: 20080205
  2. TRANEXAMIC ACID [Concomitant]
     Indication: MENORRHAGIA
     Route: 048
  3. MEFENAMIC ACID [Concomitant]
     Route: 048

REACTIONS (1)
  - EOSINOPHILIA [None]
